FAERS Safety Report 10236073 (Version 2)
Quarter: 2014Q2

REPORT INFORMATION
  Report Type: Spontaneous
  Country: DE (occurrence: SE)
  Receive Date: 20140613
  Receipt Date: 20140620
  Transmission Date: 20141212
  Serious: Yes (Hospitalization)
  Sender: FDA-Public Use
  Company Number: SE-FRI-1000068075

PATIENT
  Age: 75 Year
  Sex: Male
  Weight: 94.2 kg

DRUGS (8)
  1. MEMANTINE [Suspect]
     Indication: DEMENTIA
     Dosage: 5 MG
     Route: 048
     Dates: start: 20140212, end: 20140219
  2. MEMANTINE [Suspect]
     Dosage: 10 MG
     Route: 048
     Dates: start: 20140220, end: 20140309
  3. MEMANTINE [Suspect]
     Dosage: 15 MG
     Route: 048
     Dates: start: 20140310, end: 20140316
  4. MEMANTINE [Suspect]
     Indication: DEMENTIA
     Dosage: 20 MG
     Route: 048
     Dates: start: 20140317, end: 20140321
  5. GALANTAMIN [Concomitant]
     Indication: DEMENTIA ALZHEIMER^S TYPE
     Dates: start: 20131212, end: 20140110
  6. GALANTAMIN [Concomitant]
     Dates: start: 20140111
  7. FELODIPIN [Concomitant]
     Indication: HYPERTENSION
  8. ENALAPRIL [Concomitant]
     Indication: HYPERTENSION

REACTIONS (3)
  - Abdominal pain [Recovered/Resolved]
  - Jaundice [Recovered/Resolved]
  - Off label use [Recovered/Resolved]
